FAERS Safety Report 9901301 (Version 4)
Quarter: 2014Q4

REPORT INFORMATION
  Report Type: Spontaneous
  Country: US (occurrence: US)
  Receive Date: 20140217
  Receipt Date: 20141118
  Transmission Date: 20150529
  Serious: Yes (Hospitalization)
  Sender: FDA-Public Use
  Company Number: US-BAYER-2014-024391

PATIENT
  Age: 34 Year
  Sex: Female
  Weight: 103.4 kg

DRUGS (1)
  1. MIRENA [Suspect]
     Active Substance: LEVONORGESTREL
     Indication: CONTRACEPTION
     Dosage: 20 MCG/24HR, CONT
     Route: 015
     Dates: start: 20090923, end: 20130401

REACTIONS (10)
  - Device failure [None]
  - Scar [None]
  - Anxiety [None]
  - Injury [None]
  - Emotional distress [None]
  - Pain [None]
  - Medical device pain [None]
  - Procedural pain [None]
  - Uterine perforation [None]
  - Medical device discomfort [None]

NARRATIVE: CASE EVENT DATE: 201304
